FAERS Safety Report 14257507 (Version 1)
Quarter: 2017Q4

REPORT INFORMATION
  Report Type: Spontaneous
  Country: US (occurrence: US)
  Receive Date: 20171207
  Receipt Date: 20171207
  Transmission Date: 20180321
  Serious: No
  Sender: FDA-Public Use
  Company Number: US-ENDO PHARMACEUTICALS INC-2017-005460

PATIENT
  Sex: Female

DRUGS (2)
  1. PROPAFENONE HYDROCHLORIDE TABLETS 150MG [Suspect]
     Active Substance: PROPAFENONE HYDROCHLORIDE
     Indication: ATRIAL FIBRILLATION
  2. PROPAFENONE HYDROCHLORIDE TABLETS 150MG [Suspect]
     Active Substance: PROPAFENONE HYDROCHLORIDE
     Indication: TACHYCARDIA
     Dosage: 1 DF, TID
     Route: 048
     Dates: start: 201707

REACTIONS (3)
  - Drug intolerance [Not Recovered/Not Resolved]
  - Drug ineffective [Not Recovered/Not Resolved]
  - Arrhythmia [Not Recovered/Not Resolved]

NARRATIVE: CASE EVENT DATE: 201709
